FAERS Safety Report 25342135 (Version 1)
Quarter: 2025Q2

REPORT INFORMATION
  Report Type: Spontaneous
  Country: US (occurrence: US)
  Receive Date: 20250521
  Receipt Date: 20250521
  Transmission Date: 20250716
  Serious: Yes (Other)
  Sender: ABBVIE
  Company Number: US-ABBVIE-6288501

PATIENT
  Sex: Female

DRUGS (1)
  1. LUPRON [Suspect]
     Active Substance: LEUPROLIDE ACETATE
     Indication: Neoplasm prophylaxis
     Route: 065

REACTIONS (3)
  - Neoplasm [Unknown]
  - Breast cancer [Unknown]
  - Off label use [Not Recovered/Not Resolved]
